FAERS Safety Report 16245290 (Version 1)
Quarter: 2019Q2

REPORT INFORMATION
  Report Type: Spontaneous
  Country: FR (occurrence: FR)
  Receive Date: 20190426
  Receipt Date: 20190426
  Transmission Date: 20190711
  Serious: Yes (Hospitalization)
  Sender: FDA-Public Use
  Company Number: FR-BAUSCH-BL-2019-012036

PATIENT
  Age: 14 Year
  Sex: Male
  Weight: 73.9 kg

DRUGS (5)
  1. OXYCONTIN [Suspect]
     Active Substance: OXYCODONE HYDROCHLORIDE
     Indication: TOXICITY TO VARIOUS AGENTS
     Dosage: EXTENDED-RELEASE
     Route: 048
     Dates: start: 20190306, end: 20190306
  2. DEPAMIDE [Suspect]
     Active Substance: VALPROMIDE
     Indication: PRODUCT USED FOR UNKNOWN INDICATION
     Dosage: GASTRO-RESISTANT, 2 TO 6 CP
     Route: 048
     Dates: start: 201901, end: 20190306
  3. ACICLOVIR [Suspect]
     Active Substance: ACYCLOVIR
     Indication: TOXICITY TO VARIOUS AGENTS
     Route: 048
     Dates: start: 20190306, end: 20190306
  4. TRAMADOL BASE [Suspect]
     Active Substance: TRAMADOL
     Indication: TOXICITY TO VARIOUS AGENTS
     Route: 048
     Dates: start: 20190306, end: 20190306
  5. PREDNISOLONE. [Suspect]
     Active Substance: PREDNISOLONE
     Indication: TOXICITY TO VARIOUS AGENTS
     Route: 048
     Dates: start: 20190306, end: 20190306

REACTIONS (3)
  - Respiratory distress [Recovered/Resolved]
  - Toxicity to various agents [Recovered/Resolved]
  - Hepatocellular injury [Recovering/Resolving]

NARRATIVE: CASE EVENT DATE: 20190306
